FAERS Safety Report 7640737-4 (Version None)
Quarter: 2011Q3

REPORT INFORMATION
  Report Type: 
  Country: None (occurrence: None)
  Receive Date: 20110728
  Receipt Date: 20110707
  Transmission Date: 20111222
  Serious: Yes (Hospitalization)
  Sender: FDA-Public Use
  Company Number: US-UCBSA-029537

PATIENT
  Sex: Female

DRUGS (1)
  1. CIMZIA [Suspect]
     Indication: CROHN'S DISEASE
     Route: 058
     Dates: start: 20090608

REACTIONS (4)
  - POSTOPERATIVE WOUND INFECTION [None]
  - INCISIONAL DRAINAGE [None]
  - ABDOMINAL WOUND DEHISCENCE [None]
  - HERNIA REPAIR [None]
